FAERS Safety Report 4650728-3 (Version None)
Quarter: 2005Q2

REPORT INFORMATION
  Report Type: 
  Country: None (occurrence: None)
  Receive Date: 20050503
  Receipt Date: 20041111
  Transmission Date: 20051028
  Serious: Yes (Hospitalization)
  Sender: FDA-Public Use
  Company Number: US-2004-BP-12021BP

PATIENT
  Sex: Female

DRUGS (3)
  1. SPIRIVA [Suspect]
     Indication: CHRONIC OBSTRUCTIVE PULMONARY DISEASE
     Route: 055
  2. LIPITOR [Concomitant]
  3. LINEZOLID [Concomitant]

REACTIONS (3)
  - GLAUCOMA [None]
  - PULMONARY HYPERTENSION [None]
  - SKIN ULCER [None]
